FAERS Safety Report 20291133 (Version 5)
Quarter: 2022Q4

REPORT INFORMATION
  Report Type: Spontaneous
  Country: US (occurrence: US)
  Receive Date: 20220104
  Receipt Date: 20221101
  Transmission Date: 20230113
  Serious: Yes (Hospitalization, Disabling, Other)
  Sender: FDA-Public Use
  Company Number: US-PFIZER INC-202101857139

PATIENT
  Age: 58 Year
  Sex: Female

DRUGS (3)
  1. METRONIDAZOLE [Suspect]
     Active Substance: METRONIDAZOLE
     Indication: Abscess
     Dosage: UNK
  2. VANCOMYCIN [Concomitant]
     Active Substance: VANCOMYCIN
     Indication: Abscess
     Dosage: UNK
  3. CEFEPIME [Concomitant]
     Active Substance: CEFEPIME HYDROCHLORIDE
     Indication: Abscess
     Dosage: UNK

REACTIONS (1)
  - Neurotoxicity [Recovered/Resolved]
